FAERS Safety Report 25733641 (Version 1)
Quarter: 2025Q3

REPORT INFORMATION
  Report Type: Report from Study
  Country: GB (occurrence: GB)
  Receive Date: 20250828
  Receipt Date: 20250828
  Transmission Date: 20251020
  Serious: Yes (Hospitalization, Other)
  Sender: CELLTRION
  Company Number: GB-CELLTRION INC.-2025GB027602

PATIENT

DRUGS (3)
  1. ADALIMUMAB-AATY [Suspect]
     Active Substance: ADALIMUMAB-AATY
     Indication: Psoriatic arthropathy
     Dosage: 40 MG FOR INJECTION PEN - INJECT ONE-FILLED PEN EVERY TWO WEEKS
     Route: 058
     Dates: start: 202505, end: 20250709
  2. ADALIMUMAB-AATY [Suspect]
     Active Substance: ADALIMUMAB-AATY
     Dosage: 40 MG FOR INJECTION PEN - INJECT ONE-FILLED PEN EVERY TWO WEEKS
     Route: 058
  3. ADALIMUMAB-AATY [Suspect]
     Active Substance: ADALIMUMAB-AATY
     Dosage: 40 MG FOR INJECTION PEN - INJECT ONE-FILLED PEN EVERY TWO WEEKS
     Route: 058

REACTIONS (5)
  - Immunodeficiency [Not Recovered/Not Resolved]
  - Pelvic infection [Not Recovered/Not Resolved]
  - Infrequent bowel movements [Not Recovered/Not Resolved]
  - Gastrointestinal infection [Not Recovered/Not Resolved]
  - Intentional dose omission [Unknown]
